FAERS Safety Report 13524126 (Version 2)
Quarter: 2017Q3

REPORT INFORMATION
  Report Type: Spontaneous
  Country: IT (occurrence: IT)
  Receive Date: 20170508
  Receipt Date: 20170721
  Transmission Date: 20171127
  Serious: No
  Sender: FDA-Public Use
  Company Number: IT-KADMON PHARMACEUTICALS, LLC-KAD201705-000690

PATIENT
  Age: 56 Year
  Sex: Male

DRUGS (4)
  1. DARUNAVIR/RITONAVIR [Concomitant]
     Active Substance: DARUNAVIR\RITONAVIR
     Indication: HIV INFECTION
     Dates: start: 2004
  2. RIBAVIRIN. [Suspect]
     Active Substance: RIBAVIRIN
     Indication: CHRONIC HEPATITIS C
     Dates: start: 201512
  3. EMTRICITABINE/TENOFOVIR DISOPROXIL FUMARATE [Concomitant]
     Active Substance: EMTRICITABINE\TENOFOVIR DISOPROXIL FUMARATE
     Indication: HIV INFECTION
     Dates: start: 2004
  4. HARVONI [Suspect]
     Active Substance: LEDIPASVIR\SOFOSBUVIR
     Indication: CHRONIC HEPATITIS C
     Dates: start: 201512

REACTIONS (3)
  - Neuralgia [Recovered/Resolved]
  - Herpes zoster [Recovered/Resolved]
  - Immune-mediated adverse reaction [Recovered/Resolved]
